FAERS Safety Report 23939606 (Version 1)
Quarter: 2024Q2

REPORT INFORMATION
  Report Type: Spontaneous
  Country: US (occurrence: US)
  Receive Date: 20240605
  Receipt Date: 20240605
  Transmission Date: 20240716
  Serious: No
  Sender: FDA-Public Use
  Company Number: US-OTSUKA-2022_054357

PATIENT
  Sex: Male

DRUGS (1)
  1. SAMSCA [Suspect]
     Active Substance: TOLVAPTAN
     Indication: Blood sodium decreased
     Dosage: 7.5 MG, BID (TWICE A WEEK)
     Route: 065

REACTIONS (4)
  - Inappropriate schedule of product administration [Unknown]
  - Product prescribing issue [Unknown]
  - Wrong technique in product usage process [Unknown]
  - Inability to afford medication [Unknown]
